FAERS Safety Report 6111254-8 (Version None)
Quarter: 2009Q1

REPORT INFORMATION
  Report Type: 
  Country: None (occurrence: None)
  Receive Date: 20090311
  Receipt Date: 20090302
  Transmission Date: 20090719
  Serious: Yes (Other)
  Sender: FDA-Public Use
  Company Number: US-AVENTIS-200911666US

PATIENT
  Age: 76 Year
  Sex: Male

DRUGS (2)
  1. LANTUS [Suspect]
     Dosage: DOSE: SLIDING SCALE
     Route: 058
     Dates: start: 20040101
  2. HUMULINE                           /00806401/ [Concomitant]
     Dosage: DOSE: UNK

REACTIONS (1)
  - PROSTATE CANCER [None]
